FAERS Safety Report 9253783 (Version 1)
Quarter: 2013Q2

REPORT INFORMATION
  Report Type: Spontaneous
  Country: US (occurrence: None)
  Receive Date: 20130419
  Receipt Date: 20130419
  Transmission Date: 20140414
  Serious: Yes (Disabling)
  Sender: FDA-Public Use
  Company Number: ACO_35474_2013

PATIENT
  Age: 62 Year
  Sex: Female
  Weight: 68 kg

DRUGS (6)
  1. AMPYRA (DALFAMPRIDINE) TABLET, 10MG [Suspect]
     Indication: BALANCE DISORDER
     Route: 048
     Dates: start: 201112, end: 201204
  2. AMPYRA (DALFAMPRIDINE) TABLET, 10MG [Suspect]
     Indication: MUSCULAR WEAKNESS
     Route: 048
     Dates: start: 201112, end: 201204
  3. BACLOFEN (BACLOFEN) [Concomitant]
  4. TIZANIDINE (TIZANIDINE HYDROCHLORIDE) [Concomitant]
  5. TRAMADOL (TRAMADOL HYDROCHLORIDE) [Concomitant]
  6. GABAPENTIN (GABAPENTIN) [Concomitant]

REACTIONS (3)
  - Abasia [None]
  - Muscular weakness [None]
  - Dysgraphia [None]
